FAERS Safety Report 7630374-X (Version None)
Quarter: 2011Q3

REPORT INFORMATION
  Report Type: 
  Country: None (occurrence: None)
  Receive Date: 20110722
  Receipt Date: 20110630
  Transmission Date: 20111222
  Serious: Yes (Hospitalization)
  Sender: FDA-Public Use
  Company Number: US-GLAXOSMITHKLINE-A0870461A

PATIENT
  Age: 67 Year
  Sex: Female

DRUGS (1)
  1. AVANDIA [Suspect]
     Indication: DIABETES MELLITUS
     Route: 048
     Dates: end: 20080901

REACTIONS (5)
  - MYOCARDIAL INFARCTION [None]
  - MITRAL VALVE INCOMPETENCE [None]
  - CORONARY ARTERY DISEASE [None]
  - ATRIAL FIBRILLATION [None]
  - ISCHAEMIC CARDIOMYOPATHY [None]
